FAERS Safety Report 24689026 (Version 4)
Quarter: 2025Q2

REPORT INFORMATION
  Report Type: Spontaneous
  Country: CA (occurrence: CA)
  Receive Date: 20241203
  Receipt Date: 20250619
  Transmission Date: 20250717
  Serious: Yes (Death, Life-Threatening, Hospitalization, Disabling, Other)
  Sender: Haleon PLC
  Company Number: CA-002147023-NVSC2020CA362686

PATIENT
  Age: 43 Year
  Sex: Female
  Weight: 68 kg

DRUGS (563)
  1. DICLOFENAC [Suspect]
     Active Substance: DICLOFENAC
     Indication: Product used for unknown indication
  2. CELECOXIB [Suspect]
     Active Substance: CELECOXIB
     Indication: Product used for unknown indication
  3. CELECOXIB [Suspect]
     Active Substance: CELECOXIB
  4. CELECOXIB [Suspect]
     Active Substance: CELECOXIB
     Route: 048
  5. CELECOXIB [Suspect]
     Active Substance: CELECOXIB
  6. CERTOLIZUMAB PEGOL [Suspect]
     Active Substance: CERTOLIZUMAB PEGOL
     Indication: Rheumatoid arthritis
     Route: 058
  7. CETIRIZINE [Suspect]
     Active Substance: CETIRIZINE HYDROCHLORIDE
     Indication: Rheumatoid arthritis
  8. CETIRIZINE [Suspect]
     Active Substance: CETIRIZINE HYDROCHLORIDE
     Indication: Off label use
     Route: 048
  9. CETIRIZINE [Suspect]
     Active Substance: CETIRIZINE HYDROCHLORIDE
     Route: 048
  10. CETIRIZINE [Suspect]
     Active Substance: CETIRIZINE HYDROCHLORIDE
  11. CETIRIZINE [Suspect]
     Active Substance: CETIRIZINE HYDROCHLORIDE
  12. CETIRIZINE [Suspect]
     Active Substance: CETIRIZINE HYDROCHLORIDE
  13. CETIRIZINE [Suspect]
     Active Substance: CETIRIZINE HYDROCHLORIDE
  14. CETIRIZINE [Suspect]
     Active Substance: CETIRIZINE HYDROCHLORIDE
  15. CETIRIZINE [Suspect]
     Active Substance: CETIRIZINE HYDROCHLORIDE
  16. CETIRIZINE [Suspect]
     Active Substance: CETIRIZINE HYDROCHLORIDE
  17. CETIRIZINE [Suspect]
     Active Substance: CETIRIZINE HYDROCHLORIDE
     Route: 048
  18. CETIRIZINE [Suspect]
     Active Substance: CETIRIZINE HYDROCHLORIDE
  19. CETIRIZINE [Suspect]
     Active Substance: CETIRIZINE HYDROCHLORIDE
  20. CETIRIZINE [Suspect]
     Active Substance: CETIRIZINE HYDROCHLORIDE
     Route: 048
  21. CETIRIZINE HYDROCHLORIDE [Suspect]
     Active Substance: CETIRIZINE HYDROCHLORIDE
     Indication: Rheumatoid arthritis
     Route: 048
  22. CETIRIZINE HYDROCHLORIDE [Suspect]
     Active Substance: CETIRIZINE HYDROCHLORIDE
  23. CETIRIZINE HYDROCHLORIDE [Suspect]
     Active Substance: CETIRIZINE HYDROCHLORIDE
  24. CETIRIZINE HYDROCHLORIDE [Suspect]
     Active Substance: CETIRIZINE HYDROCHLORIDE
  25. CETIRIZINE HYDROCHLORIDE [Suspect]
     Active Substance: CETIRIZINE HYDROCHLORIDE
     Route: 016
  26. CETIRIZINE HYDROCHLORIDE [Suspect]
     Active Substance: CETIRIZINE HYDROCHLORIDE
     Route: 048
  27. CETIRIZINE HYDROCHLORIDE [Suspect]
     Active Substance: CETIRIZINE HYDROCHLORIDE
     Route: 005
  28. CETIRIZINE HYDROCHLORIDE [Suspect]
     Active Substance: CETIRIZINE HYDROCHLORIDE
  29. CETRIMIDE [Suspect]
     Active Substance: CETRIMIDE
     Indication: Product used for unknown indication
  30. CHLORAPREP [Suspect]
     Active Substance: CHLORHEXIDINE GLUCONATE\ISOPROPYL ALCOHOL
     Indication: Rheumatoid arthritis
  31. CHLORAPREP [Suspect]
     Active Substance: CHLORHEXIDINE GLUCONATE\ISOPROPYL ALCOHOL
     Indication: Product used for unknown indication
  32. CHLORAPREP [Suspect]
     Active Substance: CHLORHEXIDINE GLUCONATE\ISOPROPYL ALCOHOL
     Route: 048
  33. CHLORHEXIDINE [Suspect]
     Active Substance: CHLORHEXIDINE
     Indication: Product used for unknown indication
  34. CHLORHEXIDINE [Suspect]
     Active Substance: CHLORHEXIDINE
     Route: 002
  35. CHLORHEXIDINE [Suspect]
     Active Substance: CHLORHEXIDINE
  36. CHLORHEXIDINE GLUCONATE [Suspect]
     Active Substance: CHLORHEXIDINE GLUCONATE
     Indication: Rheumatoid arthritis
     Route: 002
  37. CIMZIA [Suspect]
     Active Substance: CERTOLIZUMAB PEGOL
     Indication: Rheumatoid arthritis
     Route: 058
  38. CIMZIA [Suspect]
     Active Substance: CERTOLIZUMAB PEGOL
     Indication: Psoriasis
     Route: 058
  39. CIMZIA [Suspect]
     Active Substance: CERTOLIZUMAB PEGOL
  40. CIMZIA [Suspect]
     Active Substance: CERTOLIZUMAB PEGOL
     Route: 058
  41. CORTISONE ACETATE [Suspect]
     Active Substance: CORTISONE ACETATE
     Indication: Rheumatoid arthritis
     Route: 048
  42. CORTISONE ACETATE [Suspect]
     Active Substance: CORTISONE ACETATE
  43. CORTISONE ACETATE [Suspect]
     Active Substance: CORTISONE ACETATE
     Route: 058
  44. CORTISONE ACETATE [Suspect]
     Active Substance: CORTISONE ACETATE
  45. CORTISONE ACETATE [Suspect]
     Active Substance: CORTISONE ACETATE
  46. CORTISONE ACETATE [Suspect]
     Active Substance: CORTISONE ACETATE
  47. CORTISONE ACETATE [Suspect]
     Active Substance: CORTISONE ACETATE
  48. CORTISONE ACETATE [Suspect]
     Active Substance: CORTISONE ACETATE
  49. CORTISONE ACETATE [Suspect]
     Active Substance: CORTISONE ACETATE
  50. CORTISONE ACETATE [Suspect]
     Active Substance: CORTISONE ACETATE
     Route: 048
  51. CORTISONE ACETATE [Suspect]
     Active Substance: CORTISONE ACETATE
     Route: 048
  52. CORTISONE ACETATE [Suspect]
     Active Substance: CORTISONE ACETATE
  53. CORTISONE ACETATE [Suspect]
     Active Substance: CORTISONE ACETATE
  54. CORTISONE ACETATE [Suspect]
     Active Substance: CORTISONE ACETATE
  55. CORTISONE ACETATE [Suspect]
     Active Substance: CORTISONE ACETATE
  56. CORTISONE ACETATE [Suspect]
     Active Substance: CORTISONE ACETATE
  57. CORTISONE ACETATE [Suspect]
     Active Substance: CORTISONE ACETATE
  58. CORTISONE ACETATE [Suspect]
     Active Substance: CORTISONE ACETATE
  59. CORTISONE ACETATE [Suspect]
     Active Substance: CORTISONE ACETATE
  60. CORTISONE ACETATE [Suspect]
     Active Substance: CORTISONE ACETATE
  61. CORTISONE ACETATE [Suspect]
     Active Substance: CORTISONE ACETATE
  62. CORTISONE ACETATE [Suspect]
     Active Substance: CORTISONE ACETATE
  63. CORTISONE ACETATE [Suspect]
     Active Substance: CORTISONE ACETATE
  64. CORTISONE ACETATE [Suspect]
     Active Substance: CORTISONE ACETATE
     Dosage: TOPICAL
  65. CORTISONE ACETATE [Suspect]
     Active Substance: CORTISONE ACETATE
  66. CORTISONE ACETATE [Suspect]
     Active Substance: CORTISONE ACETATE
     Route: 048
  67. CORTISONE ACETATE [Suspect]
     Active Substance: CORTISONE ACETATE
  68. CORTISONE ACETATE [Suspect]
     Active Substance: CORTISONE ACETATE
  69. CORTISONE ACETATE [Suspect]
     Active Substance: CORTISONE ACETATE
  70. CORTISONE ACETATE [Suspect]
     Active Substance: CORTISONE ACETATE
     Route: 058
  71. CORTISONE ACETATE [Suspect]
     Active Substance: CORTISONE ACETATE
  72. CORTISONE ACETATE [Suspect]
     Active Substance: CORTISONE ACETATE
  73. CORTISONE ACETATE [Suspect]
     Active Substance: CORTISONE ACETATE
  74. CORTISONE ACETATE [Suspect]
     Active Substance: CORTISONE ACETATE
     Route: 058
  75. CORTISONE ACETATE [Suspect]
     Active Substance: CORTISONE ACETATE
  76. VOLTAREN [Suspect]
     Active Substance: DICLOFENAC SODIUM
     Indication: Product used for unknown indication
  77. VOLTAREN [Suspect]
     Active Substance: DICLOFENAC SODIUM
  78. VOLTAREN [Suspect]
     Active Substance: DICLOFENAC SODIUM
  79. TUMS ULTRA [Suspect]
     Active Substance: CALCIUM CARBONATE
     Indication: Product used for unknown indication
  80. TUMS ULTRA [Suspect]
     Active Substance: CALCIUM CARBONATE
  81. DICLOFENAC SODIUM [Suspect]
     Active Substance: DICLOFENAC SODIUM
     Indication: Product used for unknown indication
  82. DICLOFENAC SODIUM [Suspect]
     Active Substance: DICLOFENAC SODIUM
     Route: 058
  83. DICLOFENAC SODIUM [Suspect]
     Active Substance: DICLOFENAC SODIUM
  84. DICLOFENAC SODIUM [Suspect]
     Active Substance: DICLOFENAC SODIUM
  85. DESOXIMETASONE [Suspect]
     Active Substance: DESOXIMETASONE
     Indication: Rheumatoid arthritis
     Route: 058
  86. DESOXIMETASONE [Suspect]
     Active Substance: DESOXIMETASONE
  87. DESOXIMETASONE [Suspect]
     Active Substance: DESOXIMETASONE
  88. DESOXIMETASONE [Suspect]
     Active Substance: DESOXIMETASONE
     Route: 048
  89. DESOXIMETASONE [Suspect]
     Active Substance: DESOXIMETASONE
  90. ACETAMINOPHEN [Suspect]
     Active Substance: ACETAMINOPHEN
     Indication: Rheumatoid arthritis
  91. ACETAMINOPHEN [Suspect]
     Active Substance: ACETAMINOPHEN
  92. HYDROCORTISONE [Suspect]
     Active Substance: HYDROCORTISONE
     Indication: Rheumatoid arthritis
     Route: 058
  93. HYDROCORTISONE [Suspect]
     Active Substance: HYDROCORTISONE
     Route: 048
  94. HYDROCORTISONE [Suspect]
     Active Substance: HYDROCORTISONE
     Route: 003
  95. HYDROCORTISONE [Suspect]
     Active Substance: HYDROCORTISONE
     Route: 030
  96. SALAZOPYRINE [Suspect]
     Active Substance: SULFASALAZINE
     Indication: Rheumatoid arthritis
     Route: 048
  97. DICLOFENAC [Suspect]
     Active Substance: DICLOFENAC
     Indication: Product used for unknown indication
     Route: 048
  98. DICLOFENAC [Suspect]
     Active Substance: DICLOFENAC
  99. DICLOFENAC [Suspect]
     Active Substance: DICLOFENAC
  100. DICLOFENAC [Suspect]
     Active Substance: DICLOFENAC
  101. DICLOFENAC [Suspect]
     Active Substance: DICLOFENAC
  102. DICLOFENAC [Suspect]
     Active Substance: DICLOFENAC
  103. OXYCODONE [Suspect]
     Active Substance: OXYCODONE
     Indication: Rheumatoid arthritis
  104. ADALIMUMAB [Suspect]
     Active Substance: ADALIMUMAB
     Indication: Psoriatic arthropathy
     Route: 058
  105. ADALIMUMAB [Suspect]
     Active Substance: ADALIMUMAB
     Indication: Rheumatoid arthritis
     Route: 058
  106. ADALIMUMAB [Suspect]
     Active Substance: ADALIMUMAB
     Dosage: 1 TIME EVERY 2 WEEK
     Route: 058
  107. ADALIMUMAB [Suspect]
     Active Substance: ADALIMUMAB
     Route: 058
  108. ADALIMUMAB [Suspect]
     Active Substance: ADALIMUMAB
     Route: 058
  109. ADALIMUMAB [Suspect]
     Active Substance: ADALIMUMAB
     Route: 048
  110. ADALIMUMAB [Suspect]
     Active Substance: ADALIMUMAB
  111. ADALIMUMAB [Suspect]
     Active Substance: ADALIMUMAB
  112. IODINE [Suspect]
     Active Substance: IODINE
     Indication: Product used for unknown indication
  113. ERENUMAB [Suspect]
     Active Substance: ERENUMAB
     Indication: Migraine
  114. DICLOFENAC SODIUM [Suspect]
     Active Substance: DICLOFENAC SODIUM
     Indication: Product used for unknown indication
  115. DICLOFENAC SODIUM [Suspect]
     Active Substance: DICLOFENAC SODIUM
  116. DICLOFENAC SODIUM [Suspect]
     Active Substance: DICLOFENAC SODIUM
  117. DICLOFENAC SODIUM [Suspect]
     Active Substance: DICLOFENAC SODIUM
  118. DICLOFENAC SODIUM [Suspect]
     Active Substance: DICLOFENAC SODIUM
  119. DICLOFENAC POTASSIUM [Suspect]
     Active Substance: DICLOFENAC POTASSIUM
     Indication: Product used for unknown indication
  120. ARAVA [Suspect]
     Active Substance: LEFLUNOMIDE
     Indication: Rheumatoid arthritis
     Route: 048
  121. ARAVA [Suspect]
     Active Substance: LEFLUNOMIDE
     Route: 048
  122. ARAVA [Suspect]
     Active Substance: LEFLUNOMIDE
     Route: 048
  123. ARAVA [Suspect]
     Active Substance: LEFLUNOMIDE
  124. ARAVA [Suspect]
     Active Substance: LEFLUNOMIDE
     Route: 048
  125. ARAVA [Suspect]
     Active Substance: LEFLUNOMIDE
  126. ARAVA [Suspect]
     Active Substance: LEFLUNOMIDE
  127. CORTISONE [Suspect]
     Active Substance: CORTISONE
     Indication: Rheumatoid arthritis
  128. CORTISONE [Suspect]
     Active Substance: CORTISONE
  129. CORTISONE [Suspect]
     Active Substance: CORTISONE
     Route: 058
  130. CORTISONE [Suspect]
     Active Substance: CORTISONE
     Route: 058
  131. CORTISONE [Suspect]
     Active Substance: CORTISONE
  132. CORTISONE [Suspect]
     Active Substance: CORTISONE
     Route: 048
  133. METHOTREXATE [Suspect]
     Active Substance: METHOTREXATE
     Indication: Rheumatoid arthritis
     Route: 048
  134. METHOTREXATE [Suspect]
     Active Substance: METHOTREXATE
     Route: 058
  135. METHOTREXATE [Suspect]
     Active Substance: METHOTREXATE
     Route: 058
  136. METHOTREXATE [Suspect]
     Active Substance: METHOTREXATE
     Route: 058
  137. METHOTREXATE [Suspect]
     Active Substance: METHOTREXATE
     Route: 058
  138. METHOTREXATE [Suspect]
     Active Substance: METHOTREXATE
     Route: 048
  139. METHOTREXATE [Suspect]
     Active Substance: METHOTREXATE
     Route: 048
  140. METHOTREXATE [Suspect]
     Active Substance: METHOTREXATE
     Route: 048
  141. METHOTREXATE [Suspect]
     Active Substance: METHOTREXATE
  142. METHOTREXATE [Suspect]
     Active Substance: METHOTREXATE
     Route: 048
  143. METHOTREXATE [Suspect]
     Active Substance: METHOTREXATE
     Route: 048
  144. METHOTREXATE [Suspect]
     Active Substance: METHOTREXATE
     Route: 013
  145. METHOTREXATE [Suspect]
     Active Substance: METHOTREXATE
     Route: 016
  146. METHOTREXATE [Suspect]
     Active Substance: METHOTREXATE
     Dosage: 25 MG, QD, (1 EVERY 1 DAYS)
     Route: 013
  147. METHOTREXATE [Suspect]
     Active Substance: METHOTREXATE
  148. METHOTREXATE [Suspect]
     Active Substance: METHOTREXATE
     Dosage: 25 MG, QW (1 EVERY 1 WEEK)
     Route: 013
  149. METHOTREXATE [Suspect]
     Active Substance: METHOTREXATE
     Route: 058
  150. METHOTREXATE [Suspect]
     Active Substance: METHOTREXATE
     Route: 058
  151. METHOTREXATE [Suspect]
     Active Substance: METHOTREXATE
     Route: 058
  152. METHOTREXATE [Suspect]
     Active Substance: METHOTREXATE
     Route: 048
  153. METHOTREXATE [Suspect]
     Active Substance: METHOTREXATE
     Route: 048
  154. METHOTREXATE [Suspect]
     Active Substance: METHOTREXATE
     Route: 048
  155. METHOTREXATE [Suspect]
     Active Substance: METHOTREXATE
  156. METHOTREXATE [Suspect]
     Active Substance: METHOTREXATE
     Route: 058
  157. METHOTREXATE [Suspect]
     Active Substance: METHOTREXATE
     Route: 058
  158. METHOTREXATE [Suspect]
     Active Substance: METHOTREXATE
  159. METHOTREXATE [Suspect]
     Active Substance: METHOTREXATE
  160. METHOTREXATE [Suspect]
     Active Substance: METHOTREXATE
     Route: 048
  161. METHOTREXATE [Suspect]
     Active Substance: METHOTREXATE
     Route: 013
  162. METHOTREXATE [Suspect]
     Active Substance: METHOTREXATE
     Route: 048
  163. METHOTREXATE [Suspect]
     Active Substance: METHOTREXATE
     Route: 058
  164. LEFLUNOMIDE [Suspect]
     Active Substance: LEFLUNOMIDE
     Indication: Rheumatoid arthritis
  165. LEFLUNOMIDE [Suspect]
     Active Substance: LEFLUNOMIDE
  166. LEFLUNOMIDE [Suspect]
     Active Substance: LEFLUNOMIDE
  167. LEFLUNOMIDE [Suspect]
     Active Substance: LEFLUNOMIDE
  168. MYCOPHENOLATE MOFETIL [Suspect]
     Active Substance: MYCOPHENOLATE MOFETIL
     Indication: Product used for unknown indication
  169. MYCOPHENOLATE MOFETIL [Suspect]
     Active Substance: MYCOPHENOLATE MOFETIL
  170. AIMOVIG [Suspect]
     Active Substance: ERENUMAB-AOOE
     Indication: Migraine
  171. COSENTYX [Suspect]
     Active Substance: SECUKINUMAB
     Indication: Psoriatic arthropathy
  172. COSENTYX [Suspect]
     Active Substance: SECUKINUMAB
     Indication: Rheumatoid arthritis
  173. LEFLUNOMIDE [Suspect]
     Active Substance: LEFLUNOMIDE
     Indication: Rheumatoid arthritis
     Route: 048
  174. LEFLUNOMIDE [Suspect]
     Active Substance: LEFLUNOMIDE
  175. LEFLUNOMIDE [Suspect]
     Active Substance: LEFLUNOMIDE
  176. LEFLUNOMIDE [Suspect]
     Active Substance: LEFLUNOMIDE
  177. LEFLUNOMIDE [Suspect]
     Active Substance: LEFLUNOMIDE
     Route: 048
  178. LEFLUNOMIDE [Suspect]
     Active Substance: LEFLUNOMIDE
  179. ACTEMRA [Suspect]
     Active Substance: TOCILIZUMAB
     Indication: Rheumatoid arthritis
  180. ACTEMRA [Suspect]
     Active Substance: TOCILIZUMAB
  181. ACTEMRA [Suspect]
     Active Substance: TOCILIZUMAB
  182. ACTEMRA [Suspect]
     Active Substance: TOCILIZUMAB
  183. ACTEMRA [Suspect]
     Active Substance: TOCILIZUMAB
  184. ACTEMRA [Suspect]
     Active Substance: TOCILIZUMAB
  185. ACTEMRA [Suspect]
     Active Substance: TOCILIZUMAB
  186. ETANERCEPT [Suspect]
     Active Substance: ETANERCEPT
     Indication: Rheumatoid arthritis
     Route: 058
  187. RITUXIMAB [Suspect]
     Active Substance: RITUXIMAB
     Indication: Rheumatoid arthritis
  188. RITUXIMAB [Suspect]
     Active Substance: RITUXIMAB
  189. RITUXIMAB [Suspect]
     Active Substance: RITUXIMAB
  190. RITUXIMAB [Suspect]
     Active Substance: RITUXIMAB
  191. RITUXIMAB [Suspect]
     Active Substance: RITUXIMAB
  192. RITUXIMAB [Suspect]
     Active Substance: RITUXIMAB
  193. RITUXIMAB [Suspect]
     Active Substance: RITUXIMAB
  194. RITUXIMAB [Suspect]
     Active Substance: RITUXIMAB
     Route: 043
  195. RITUXIMAB [Suspect]
     Active Substance: RITUXIMAB
  196. RITUXIMAB [Suspect]
     Active Substance: RITUXIMAB
  197. RITUXIMAB [Suspect]
     Active Substance: RITUXIMAB
     Route: 043
  198. RITUXIMAB [Suspect]
     Active Substance: RITUXIMAB
     Route: 043
  199. RITUXIMAB [Suspect]
     Active Substance: RITUXIMAB
  200. RITUXIMAB [Suspect]
     Active Substance: RITUXIMAB
  201. RITUXIMAB [Suspect]
     Active Substance: RITUXIMAB
  202. RITUXIMAB [Suspect]
     Active Substance: RITUXIMAB
     Route: 058
  203. PREGABALIN [Suspect]
     Active Substance: PREGABALIN
     Indication: Rheumatoid arthritis
  204. ERELZI [Suspect]
     Active Substance: ETANERCEPT-SZZS
     Indication: Rheumatoid arthritis
     Route: 058
  205. ERELZI [Suspect]
     Active Substance: ETANERCEPT-SZZS
  206. ERELZI [Suspect]
     Active Substance: ETANERCEPT-SZZS
  207. ERELZI [Suspect]
     Active Substance: ETANERCEPT-SZZS
  208. ERELZI [Suspect]
     Active Substance: ETANERCEPT-SZZS
  209. ERELZI [Suspect]
     Active Substance: ETANERCEPT-SZZS
  210. ERELZI [Suspect]
     Active Substance: ETANERCEPT-SZZS
     Route: 058
  211. ERELZI [Suspect]
     Active Substance: ETANERCEPT-SZZS
  212. ERELZI [Suspect]
     Active Substance: ETANERCEPT-SZZS
     Route: 058
  213. ERELZI [Suspect]
     Active Substance: ETANERCEPT-SZZS
  214. METHOTREXATE [Suspect]
     Active Substance: METHOTREXATE
     Indication: Rheumatoid arthritis
  215. METHOTREXATE [Suspect]
     Active Substance: METHOTREXATE
  216. METHOTREXATE [Suspect]
     Active Substance: METHOTREXATE
     Route: 048
  217. METHOTREXATE [Suspect]
     Active Substance: METHOTREXATE
     Route: 048
  218. METHOTREXATE [Suspect]
     Active Substance: METHOTREXATE
     Route: 048
  219. METHOTREXATE [Suspect]
     Active Substance: METHOTREXATE
     Route: 013
  220. METHOTREXATE [Suspect]
     Active Substance: METHOTREXATE
     Route: 058
  221. METHOTREXATE [Suspect]
     Active Substance: METHOTREXATE
     Route: 048
  222. METHOTREXATE [Suspect]
     Active Substance: METHOTREXATE
     Route: 048
  223. METHOTREXATE [Suspect]
     Active Substance: METHOTREXATE
     Route: 048
  224. METHOTREXATE [Suspect]
     Active Substance: METHOTREXATE
     Route: 048
  225. METHOTREXATE [Suspect]
     Active Substance: METHOTREXATE
     Route: 048
  226. METHOTREXATE [Suspect]
     Active Substance: METHOTREXATE
  227. METHOTREXATE [Suspect]
     Active Substance: METHOTREXATE
     Route: 048
  228. METHOTREXATE [Suspect]
     Active Substance: METHOTREXATE
  229. METHOTREXATE [Suspect]
     Active Substance: METHOTREXATE
     Route: 013
  230. METHOTREXATE [Suspect]
     Active Substance: METHOTREXATE
     Route: 013
  231. METHOTREXATE [Suspect]
     Active Substance: METHOTREXATE
  232. METHOTREXATE [Suspect]
     Active Substance: METHOTREXATE
     Route: 058
  233. METHOTREXATE [Suspect]
     Active Substance: METHOTREXATE
  234. METHOTREXATE [Suspect]
     Active Substance: METHOTREXATE
     Route: 048
  235. METHOTREXATE [Suspect]
     Active Substance: METHOTREXATE
  236. METHOTREXATE [Suspect]
     Active Substance: METHOTREXATE
  237. METHOTREXATE [Suspect]
     Active Substance: METHOTREXATE
     Route: 048
  238. METHOTREXATE [Suspect]
     Active Substance: METHOTREXATE
     Route: 013
  239. METHOTREXATE [Suspect]
     Active Substance: METHOTREXATE
     Route: 058
  240. METHOTREXATE [Suspect]
     Active Substance: METHOTREXATE
     Route: 048
  241. METHOTREXATE [Suspect]
     Active Substance: METHOTREXATE
     Route: 048
  242. ALENDRONIC ACID [Suspect]
     Active Substance: ALENDRONIC ACID
     Indication: Rheumatoid arthritis
     Route: 048
  243. ADALIMUMAB [Suspect]
     Active Substance: ADALIMUMAB
     Indication: Rheumatoid arthritis
     Route: 058
  244. ADALIMUMAB [Suspect]
     Active Substance: ADALIMUMAB
     Indication: Psoriatic arthropathy
     Route: 058
  245. COSENTYX [Suspect]
     Active Substance: SECUKINUMAB
     Indication: Rheumatoid arthritis
     Route: 042
  246. COSENTYX [Suspect]
     Active Substance: SECUKINUMAB
     Indication: Psoriatic arthropathy
  247. LEFLUNOMIDE [Suspect]
     Active Substance: LEFLUNOMIDE
     Indication: Rheumatoid arthritis
     Route: 048
  248. ERELZI [Suspect]
     Active Substance: ETANERCEPT-SZZS
     Indication: Rheumatoid arthritis
  249. ERELZI [Suspect]
     Active Substance: ETANERCEPT-SZZS
  250. ERELZI [Suspect]
     Active Substance: ETANERCEPT-SZZS
  251. ERELZI [Suspect]
     Active Substance: ETANERCEPT-SZZS
  252. ERELZI [Suspect]
     Active Substance: ETANERCEPT-SZZS
  253. ERELZI [Suspect]
     Active Substance: ETANERCEPT-SZZS
  254. ERELZI [Suspect]
     Active Substance: ETANERCEPT-SZZS
  255. ERELZI [Suspect]
     Active Substance: ETANERCEPT-SZZS
  256. ERELZI [Suspect]
     Active Substance: ETANERCEPT-SZZS
     Route: 058
  257. ERELZI [Suspect]
     Active Substance: ETANERCEPT-SZZS
     Route: 058
  258. ERELZI [Suspect]
     Active Substance: ETANERCEPT-SZZS
     Route: 058
  259. ERELZI [Suspect]
     Active Substance: ETANERCEPT-SZZS
  260. ERELZI [Suspect]
     Active Substance: ETANERCEPT-SZZS
     Route: 058
  261. ERELZI [Suspect]
     Active Substance: ETANERCEPT-SZZS
  262. ALENDRONATE SODIUM [Suspect]
     Active Substance: ALENDRONATE SODIUM
     Indication: Rheumatoid arthritis
     Route: 048
  263. ALENDRONATE SODIUM [Suspect]
     Active Substance: ALENDRONATE SODIUM
  264. ALENDRONATE SODIUM [Suspect]
     Active Substance: ALENDRONATE SODIUM
     Indication: Rheumatoid arthritis
     Route: 048
  265. CANDESARTAN [Suspect]
     Active Substance: CANDESARTAN
     Indication: Migraine
     Route: 048
  266. FOLIC ACID [Suspect]
     Active Substance: FOLIC ACID
     Indication: Rheumatoid arthritis
  267. FOLIC ACID [Suspect]
     Active Substance: FOLIC ACID
  268. FOLIC ACID [Suspect]
     Active Substance: FOLIC ACID
  269. FOLIC ACID [Suspect]
     Active Substance: FOLIC ACID
  270. FOLIC ACID [Suspect]
     Active Substance: FOLIC ACID
  271. FOLIC ACID [Suspect]
     Active Substance: FOLIC ACID
  272. FOLIC ACID [Suspect]
     Active Substance: FOLIC ACID
     Route: 048
  273. FOLIC ACID [Suspect]
     Active Substance: FOLIC ACID
  274. FOLIC ACID [Suspect]
     Active Substance: FOLIC ACID
     Route: 048
  275. FOLIC ACID [Suspect]
     Active Substance: FOLIC ACID
     Route: 048
  276. FOLIC ACID [Suspect]
     Active Substance: FOLIC ACID
  277. FOLIC ACID [Suspect]
     Active Substance: FOLIC ACID
  278. FOLIC ACID [Suspect]
     Active Substance: FOLIC ACID
     Route: 058
  279. FOLIC ACID [Suspect]
     Active Substance: FOLIC ACID
     Dosage: 5 MG (1 EVERY .25 DAY)
     Route: 058
  280. FOLIC ACID [Suspect]
     Active Substance: FOLIC ACID
  281. FOLIC ACID [Suspect]
     Active Substance: FOLIC ACID
  282. FOLIC ACID [Suspect]
     Active Substance: FOLIC ACID
  283. FOLIC ACID [Suspect]
     Active Substance: FOLIC ACID
     Indication: Rheumatoid arthritis
     Route: 058
  284. FOLIC ACID [Suspect]
     Active Substance: FOLIC ACID
  285. FOLIC ACID [Suspect]
     Active Substance: FOLIC ACID
  286. FOLIC ACID [Suspect]
     Active Substance: FOLIC ACID
     Route: 048
  287. FOLIC ACID [Suspect]
     Active Substance: FOLIC ACID
     Route: 048
  288. FOLIC ACID [Suspect]
     Active Substance: FOLIC ACID
     Route: 048
  289. FOLIC ACID [Suspect]
     Active Substance: FOLIC ACID
     Route: 048
  290. FOLIC ACID [Suspect]
     Active Substance: FOLIC ACID
  291. FOLIC ACID [Suspect]
     Active Substance: FOLIC ACID
  292. FOLIC ACID [Suspect]
     Active Substance: FOLIC ACID
  293. FOLIC ACID [Suspect]
     Active Substance: FOLIC ACID
  294. FOLIC ACID [Suspect]
     Active Substance: FOLIC ACID
  295. FOLIC ACID [Suspect]
     Active Substance: FOLIC ACID
  296. FOLIC ACID [Suspect]
     Active Substance: FOLIC ACID
  297. FOLIC ACID [Suspect]
     Active Substance: FOLIC ACID
  298. FOLIC ACID [Suspect]
     Active Substance: FOLIC ACID
  299. FOLIC ACID [Suspect]
     Active Substance: FOLIC ACID
  300. FOLIC ACID [Suspect]
     Active Substance: FOLIC ACID
  301. FOLIC ACID [Suspect]
     Active Substance: FOLIC ACID
  302. FOLIC ACID [Suspect]
     Active Substance: FOLIC ACID
  303. FOLIC ACID [Suspect]
     Active Substance: FOLIC ACID
  304. FOLIC ACID [Suspect]
     Active Substance: FOLIC ACID
  305. FOLIC ACID [Suspect]
     Active Substance: FOLIC ACID
  306. FOLIC ACID [Suspect]
     Active Substance: FOLIC ACID
     Route: 058
  307. FOLIC ACID [Suspect]
     Active Substance: FOLIC ACID
  308. OXYCODONE HYDROCHLORIDE [Suspect]
     Active Substance: OXYCODONE HYDROCHLORIDE
     Indication: Product used for unknown indication
  309. PANTOPRAZOLE SODIUM ANHYDROUS [Suspect]
     Active Substance: PANTOPRAZOLE SODIUM ANHYDROUS
     Indication: Dyspepsia
     Route: 005
  310. PANTOPRAZOLE SODIUM ANHYDROUS [Suspect]
     Active Substance: PANTOPRAZOLE SODIUM ANHYDROUS
     Indication: Product used for unknown indication
  311. PREGABALIN [Suspect]
     Active Substance: PREGABALIN
     Indication: Product used for unknown indication
  312. QUETIAPINE FUMARATE [Suspect]
     Active Substance: QUETIAPINE FUMARATE
     Indication: Product used for unknown indication
  313. QUETIAPINE FUMARATE [Suspect]
     Active Substance: QUETIAPINE FUMARATE
     Indication: Product used for unknown indication
  314. QUETIAPINE FUMARATE [Suspect]
     Active Substance: QUETIAPINE FUMARATE
  315. METHOTREXATE [Suspect]
     Active Substance: METHOTREXATE
     Indication: Rheumatoid arthritis
     Route: 013
  316. METHOTREXATE [Suspect]
     Active Substance: METHOTREXATE
     Route: 048
  317. METHOTREXATE [Suspect]
     Active Substance: METHOTREXATE
     Dosage: 25 MG, Q24H (1 EVERY 24 HOUR)
     Route: 014
  318. METHOTREXATE [Suspect]
     Active Substance: METHOTREXATE
     Route: 048
  319. METHOTREXATE [Suspect]
     Active Substance: METHOTREXATE
     Route: 013
  320. METHOTREXATE [Suspect]
     Active Substance: METHOTREXATE
     Route: 013
  321. METHOTREXATE [Suspect]
     Active Substance: METHOTREXATE
     Route: 048
  322. METHOTREXATE [Suspect]
     Active Substance: METHOTREXATE
     Route: 048
  323. METHOTREXATE [Suspect]
     Active Substance: METHOTREXATE
     Route: 048
  324. METHOTREXATE [Suspect]
     Active Substance: METHOTREXATE
     Route: 048
  325. METHOTREXATE [Suspect]
     Active Substance: METHOTREXATE
  326. METHOTREXATE [Suspect]
     Active Substance: METHOTREXATE
     Route: 048
  327. METHOTREXATE [Suspect]
     Active Substance: METHOTREXATE
     Route: 048
  328. METHOTREXATE [Suspect]
     Active Substance: METHOTREXATE
  329. METHOTREXATE [Suspect]
     Active Substance: METHOTREXATE
     Route: 048
  330. METHOTREXATE [Suspect]
     Active Substance: METHOTREXATE
     Route: 048
  331. METHOTREXATE [Suspect]
     Active Substance: METHOTREXATE
     Route: 048
  332. METHOTREXATE [Suspect]
     Active Substance: METHOTREXATE
  333. METHOTREXATE [Suspect]
     Active Substance: METHOTREXATE
     Route: 048
  334. METHOTREXATE [Suspect]
     Active Substance: METHOTREXATE
     Route: 048
  335. METHOTREXATE [Suspect]
     Active Substance: METHOTREXATE
     Route: 048
  336. METHOTREXATE [Suspect]
     Active Substance: METHOTREXATE
     Route: 058
  337. METHOTREXATE [Suspect]
     Active Substance: METHOTREXATE
     Route: 048
  338. METHOTREXATE [Suspect]
     Active Substance: METHOTREXATE
     Route: 013
  339. METHOTREXATE [Suspect]
     Active Substance: METHOTREXATE
     Route: 048
  340. METHOTREXATE [Suspect]
     Active Substance: METHOTREXATE
     Route: 048
  341. METHOTREXATE [Suspect]
     Active Substance: METHOTREXATE
  342. METHOTREXATE [Suspect]
     Active Substance: METHOTREXATE
     Route: 058
  343. METHOTREXATE [Suspect]
     Active Substance: METHOTREXATE
  344. METHOTREXATE [Suspect]
     Active Substance: METHOTREXATE
     Route: 048
  345. METHOTREXATE [Suspect]
     Active Substance: METHOTREXATE
     Route: 048
  346. METHOTREXATE [Suspect]
     Active Substance: METHOTREXATE
     Route: 048
  347. METHOTREXATE [Suspect]
     Active Substance: METHOTREXATE
     Route: 048
  348. METHOTREXATE [Suspect]
     Active Substance: METHOTREXATE
     Route: 048
  349. DICLOFENAC POTASSIUM [Suspect]
     Active Substance: DICLOFENAC POTASSIUM
     Indication: Product used for unknown indication
  350. DICLOFENAC POTASSIUM [Suspect]
     Active Substance: DICLOFENAC POTASSIUM
     Route: 058
  351. DICLOFENAC POTASSIUM [Suspect]
     Active Substance: DICLOFENAC POTASSIUM
  352. DICLOFENAC POTASSIUM [Suspect]
     Active Substance: DICLOFENAC POTASSIUM
  353. DICLOFENAC POTASSIUM [Suspect]
     Active Substance: DICLOFENAC POTASSIUM
  354. DICLOFENAC POTASSIUM [Suspect]
     Active Substance: DICLOFENAC POTASSIUM
  355. DICLOFENAC POTASSIUM [Suspect]
     Active Substance: DICLOFENAC POTASSIUM
  356. DICLOFENAC POTASSIUM [Suspect]
     Active Substance: DICLOFENAC POTASSIUM
  357. DICLOFENAC POTASSIUM [Suspect]
     Active Substance: DICLOFENAC POTASSIUM
  358. DICLOFENAC POTASSIUM [Suspect]
     Active Substance: DICLOFENAC POTASSIUM
  359. DICLOFENAC POTASSIUM [Suspect]
     Active Substance: DICLOFENAC POTASSIUM
  360. DICLOFENAC POTASSIUM [Suspect]
     Active Substance: DICLOFENAC POTASSIUM
  361. ACETAMINOPHEN [Suspect]
     Active Substance: ACETAMINOPHEN
     Indication: Rheumatoid arthritis
  362. ACETAMINOPHEN [Suspect]
     Active Substance: ACETAMINOPHEN
     Indication: Product used for unknown indication
  363. ACETAMINOPHEN [Suspect]
     Active Substance: ACETAMINOPHEN
  364. ACETAMINOPHEN [Suspect]
     Active Substance: ACETAMINOPHEN
  365. ACETAMINOPHEN\OXYCODONE HYDROCHLORIDE [Suspect]
     Active Substance: ACETAMINOPHEN\OXYCODONE HYDROCHLORIDE
     Indication: Product used for unknown indication
  366. ACETAMINOPHEN AND CODEINE [Suspect]
     Active Substance: ACETAMINOPHEN\CODEINE PHOSPHATE
     Indication: Product used for unknown indication
  367. ACETAMINOPHEN AND CODEINE [Suspect]
     Active Substance: ACETAMINOPHEN\CODEINE PHOSPHATE
  368. ACTEMRA [Suspect]
     Active Substance: TOCILIZUMAB
     Indication: Rheumatoid arthritis
     Route: 042
  369. ACTEMRA [Suspect]
     Active Substance: TOCILIZUMAB
     Route: 048
  370. ACTEMRA [Suspect]
     Active Substance: TOCILIZUMAB
  371. ACTEMRA [Suspect]
     Active Substance: TOCILIZUMAB
     Route: 042
  372. ACTEMRA [Suspect]
     Active Substance: TOCILIZUMAB
     Route: 048
  373. ACTEMRA [Suspect]
     Active Substance: TOCILIZUMAB
     Route: 042
  374. ACTEMRA [Suspect]
     Active Substance: TOCILIZUMAB
     Route: 058
  375. ACTEMRA [Suspect]
     Active Substance: TOCILIZUMAB
     Route: 042
  376. ACTEMRA [Suspect]
     Active Substance: TOCILIZUMAB
     Route: 058
  377. ACTEMRA [Suspect]
     Active Substance: TOCILIZUMAB
     Route: 058
  378. ACTEMRA [Suspect]
     Active Substance: TOCILIZUMAB
  379. ACTEMRA [Suspect]
     Active Substance: TOCILIZUMAB
     Route: 048
  380. ACTEMRA [Suspect]
     Active Substance: TOCILIZUMAB
     Route: 042
  381. ACTEMRA [Suspect]
     Active Substance: TOCILIZUMAB
  382. ACTEMRA [Suspect]
     Active Substance: TOCILIZUMAB
  383. ACTEMRA [Suspect]
     Active Substance: TOCILIZUMAB
     Route: 042
  384. ACTEMRA [Suspect]
     Active Substance: TOCILIZUMAB
     Route: 058
  385. PREDNISONE [Suspect]
     Active Substance: PREDNISONE
     Indication: Rheumatoid arthritis
  386. PREDNISONE [Suspect]
     Active Substance: PREDNISONE
     Indication: Condition aggravated
  387. PREDNISONE [Suspect]
     Active Substance: PREDNISONE
  388. PREDNISONE [Suspect]
     Active Substance: PREDNISONE
     Route: 048
  389. PREDNISONE [Suspect]
     Active Substance: PREDNISONE
     Route: 048
  390. PREDNISONE [Suspect]
     Active Substance: PREDNISONE
  391. PREDNISONE [Suspect]
     Active Substance: PREDNISONE
  392. PREDNISONE [Suspect]
     Active Substance: PREDNISONE
     Route: 048
  393. PREDNISONE [Suspect]
     Active Substance: PREDNISONE
     Route: 042
  394. PREDNISONE [Suspect]
     Active Substance: PREDNISONE
     Route: 048
  395. PREDNISONE [Suspect]
     Active Substance: PREDNISONE
  396. PREDNISONE [Suspect]
     Active Substance: PREDNISONE
     Route: 048
  397. PREDNISONE [Suspect]
     Active Substance: PREDNISONE
  398. PREDNISONE [Suspect]
     Active Substance: PREDNISONE
  399. APREMILAST [Suspect]
     Active Substance: APREMILAST
     Indication: Product used for unknown indication
     Dosage: 2 EVERY 1 DAYS
  400. DESOXIMETASONE [Suspect]
     Active Substance: DESOXIMETASONE
     Indication: Rheumatoid arthritis
     Route: 058
  401. DESOXIMETASONE [Suspect]
     Active Substance: DESOXIMETASONE
     Route: 058
  402. DESOXIMETASONE [Suspect]
     Active Substance: DESOXIMETASONE
     Route: 058
  403. DESOXIMETASONE [Suspect]
     Active Substance: DESOXIMETASONE
  404. DESOXIMETASONE [Suspect]
     Active Substance: DESOXIMETASONE
     Route: 048
  405. DESOXIMETASONE [Suspect]
     Active Substance: DESOXIMETASONE
     Route: 048
  406. DESOXIMETASONE [Suspect]
     Active Substance: DESOXIMETASONE
     Route: 048
  407. DESOXIMETASONE [Suspect]
     Active Substance: DESOXIMETASONE
  408. DESOXIMETASONE [Suspect]
     Active Substance: DESOXIMETASONE
     Route: 048
  409. DESOXIMETASONE [Suspect]
     Active Substance: DESOXIMETASONE
  410. DESOXIMETASONE [Suspect]
     Active Substance: DESOXIMETASONE
  411. DESOXIMETASONE [Suspect]
     Active Substance: DESOXIMETASONE
     Route: 048
  412. DESOXIMETASONE [Suspect]
     Active Substance: DESOXIMETASONE
     Route: 048
  413. DESOXIMETASONE [Suspect]
     Active Substance: DESOXIMETASONE
  414. DESOXIMETASONE [Suspect]
     Active Substance: DESOXIMETASONE
  415. DEXAMETHASONE SODIUM PHOSPHATE [Suspect]
     Active Substance: DEXAMETHASONE SODIUM PHOSPHATE
     Indication: Rheumatoid arthritis
  416. DEXAMETHASONE SODIUM PHOSPHATE [Suspect]
     Active Substance: DEXAMETHASONE SODIUM PHOSPHATE
     Route: 048
  417. DEXAMETHASONE SODIUM PHOSPHATE [Suspect]
     Active Substance: DEXAMETHASONE SODIUM PHOSPHATE
     Route: 048
  418. DEXAMETHASONE SODIUM PHOSPHATE [Suspect]
     Active Substance: DEXAMETHASONE SODIUM PHOSPHATE
     Route: 048
  419. DEXAMETHASONE SODIUM PHOSPHATE [Suspect]
     Active Substance: DEXAMETHASONE SODIUM PHOSPHATE
     Route: 048
  420. DEXAMETHASONE SODIUM PHOSPHATE [Suspect]
     Active Substance: DEXAMETHASONE SODIUM PHOSPHATE
  421. DOXYCYCLINE [Suspect]
     Active Substance: DOXYCYCLINE
     Indication: Product used for unknown indication
  422. ENBREL [Suspect]
     Active Substance: ETANERCEPT
     Indication: Rheumatoid arthritis
     Route: 058
  423. ENBREL [Suspect]
     Active Substance: ETANERCEPT
     Indication: Psoriatic arthropathy
     Route: 058
  424. ENBREL [Suspect]
     Active Substance: ETANERCEPT
     Route: 058
  425. ENBREL [Suspect]
     Active Substance: ETANERCEPT
     Route: 058
  426. ENBREL [Suspect]
     Active Substance: ETANERCEPT
     Route: 058
  427. FLUMETHASONE PIVALATE [Suspect]
     Active Substance: FLUMETHASONE PIVALATE
     Indication: Rheumatoid arthritis
     Route: 058
  428. FLUMETHASONE PIVALATE [Suspect]
     Active Substance: FLUMETHASONE PIVALATE
     Route: 058
  429. FLUMETHASONE PIVALATE [Suspect]
     Active Substance: FLUMETHASONE PIVALATE
  430. FOSAMAX [Suspect]
     Active Substance: ALENDRONATE SODIUM
     Indication: Rheumatoid arthritis
     Route: 048
  431. GOLIMUMAB [Suspect]
     Active Substance: GOLIMUMAB
     Indication: Rheumatoid arthritis
  432. GOLIMUMAB [Suspect]
     Active Substance: GOLIMUMAB
  433. GOLIMUMAB [Suspect]
     Active Substance: GOLIMUMAB
     Route: 058
  434. HUMIRA [Suspect]
     Active Substance: ADALIMUMAB
     Indication: Rheumatoid arthritis
     Route: 058
  435. HUMIRA [Suspect]
     Active Substance: ADALIMUMAB
     Indication: Psoriatic arthropathy
     Route: 057
  436. HUMIRA [Suspect]
     Active Substance: ADALIMUMAB
     Route: 058
  437. HUMIRA [Suspect]
     Active Substance: ADALIMUMAB
     Route: 058
  438. HUMIRA [Suspect]
     Active Substance: ADALIMUMAB
     Route: 058
  439. HUMIRA [Suspect]
     Active Substance: ADALIMUMAB
     Route: 057
  440. HYDROCORTISONE PROBUTATE [Suspect]
     Active Substance: HYDROCORTISONE PROBUTATE
     Indication: Rheumatoid arthritis
  441. HYDROXYCHLOROQUINE [Suspect]
     Active Substance: HYDROXYCHLOROQUINE
     Indication: Rheumatoid arthritis
  442. HYDROXYCHLOROQUINE SULFATE [Suspect]
     Active Substance: HYDROXYCHLOROQUINE SULFATE
     Indication: Rheumatoid arthritis
     Route: 048
  443. HYDROXYCHLOROQUINE SULFATE [Suspect]
     Active Substance: HYDROXYCHLOROQUINE SULFATE
  444. HYDROXYCHLOROQUINE SULFATE [Suspect]
     Active Substance: HYDROXYCHLOROQUINE SULFATE
  445. HYDROXYCHLOROQUINE SULFATE [Suspect]
     Active Substance: HYDROXYCHLOROQUINE SULFATE
     Indication: Product used for unknown indication
  446. HYRIMOZ [Suspect]
     Active Substance: ADALIMUMAB-ADAZ
     Indication: Product used for unknown indication
     Route: 058
  447. HYRIMOZ [Suspect]
     Active Substance: ADALIMUMAB-ADAZ
     Route: 058
  448. HYRIMOZ [Suspect]
     Active Substance: ADALIMUMAB-ADAZ
     Route: 057
  449. HYRIMOZ [Suspect]
     Active Substance: ADALIMUMAB-ADAZ
     Route: 058
  450. HYRIMOZ [Suspect]
     Active Substance: ADALIMUMAB-ADAZ
     Route: 058
  451. HYRIMOZ [Suspect]
     Active Substance: ADALIMUMAB-ADAZ
     Route: 058
  452. HYRIMOZ [Suspect]
     Active Substance: ADALIMUMAB-ADAZ
     Route: 058
  453. HYRIMOZ [Suspect]
     Active Substance: ADALIMUMAB-ADAZ
     Route: 048
  454. HYRIMOZ [Suspect]
     Active Substance: ADALIMUMAB-ADAZ
     Route: 058
  455. HYRIMOZ [Suspect]
     Active Substance: ADALIMUMAB-ADAZ
     Route: 058
  456. HYRIMOZ [Suspect]
     Active Substance: ADALIMUMAB-ADAZ
     Route: 058
  457. HYRIMOZ [Suspect]
     Active Substance: ADALIMUMAB-ADAZ
     Route: 058
  458. HYRIMOZ [Suspect]
     Active Substance: ADALIMUMAB-ADAZ
     Route: 058
  459. HYRIMOZ [Suspect]
     Active Substance: ADALIMUMAB-ADAZ
     Route: 057
  460. HYRIMOZ [Suspect]
     Active Substance: ADALIMUMAB-ADAZ
     Route: 057
  461. INFLIXIMAB [Suspect]
     Active Substance: INFLIXIMAB
     Indication: Rheumatoid arthritis
     Route: 042
  462. INFLIXIMAB [Suspect]
     Active Substance: INFLIXIMAB
     Route: 042
  463. INFLIXIMAB [Suspect]
     Active Substance: INFLIXIMAB
  464. INFLIXIMAB [Suspect]
     Active Substance: INFLIXIMAB
  465. INFLIXIMAB [Suspect]
     Active Substance: INFLIXIMAB
     Route: 042
  466. ISOPROPYL ALCOHOL [Suspect]
     Active Substance: ISOPROPYL ALCOHOL
     Indication: Product used for unknown indication
     Route: 002
  467. KEVZARA [Suspect]
     Active Substance: SARILUMAB
     Indication: Rheumatoid arthritis
  468. KEVZARA [Suspect]
     Active Substance: SARILUMAB
  469. METHYLPREDNISOLONE SODIUM SUCCINATE [Suspect]
     Active Substance: METHYLPREDNISOLONE SODIUM SUCCINATE
     Indication: Product used for unknown indication
  470. METHYLPREDNISOLONE SODIUM SUCCINATE [Suspect]
     Active Substance: METHYLPREDNISOLONE SODIUM SUCCINATE
  471. NAPROXEN SODIUM [Suspect]
     Active Substance: NAPROXEN SODIUM
     Indication: Product used for unknown indication
     Dosage: 2 EVERY 1 DAYS
  472. NEOMYCIN [Suspect]
     Active Substance: NEOMYCIN
     Indication: Product used for unknown indication
  473. NICOTINAMIDE [Suspect]
     Active Substance: NIACINAMIDE
     Indication: Product used for unknown indication
  474. ORENCIA [Suspect]
     Active Substance: ABATACEPT
     Indication: Rheumatoid arthritis
  475. ORENCIA [Suspect]
     Active Substance: ABATACEPT
     Route: 042
  476. ORENCIA [Suspect]
     Active Substance: ABATACEPT
     Route: 058
  477. ORENCIA [Suspect]
     Active Substance: ABATACEPT
     Route: 058
  478. ORENCIA [Suspect]
     Active Substance: ABATACEPT
  479. ORENCIA [Suspect]
     Active Substance: ABATACEPT
  480. ORENCIA [Suspect]
     Active Substance: ABATACEPT
     Dosage: DOSAGE FORM: SOLUTION FOR INJECTION/INFUSION
  481. ORENCIA [Suspect]
     Active Substance: ABATACEPT
     Route: 058
  482. ORENCIA [Suspect]
     Active Substance: ABATACEPT
     Dosage: DOSAGE FORM: SOLUTION FOR INJECTION/INFUSION
  483. ORENCIA [Suspect]
     Active Substance: ABATACEPT
     Route: 058
  484. ORENCIA [Suspect]
     Active Substance: ABATACEPT
     Indication: Rheumatoid arthritis
     Route: 058
  485. ORENCIA [Suspect]
     Active Substance: ABATACEPT
     Route: 042
  486. OTEZLA [Suspect]
     Active Substance: APREMILAST
     Indication: Product used for unknown indication
     Dosage: 2 EVERY 1 DAYS
     Route: 048
  487. OTEZLA [Suspect]
     Active Substance: APREMILAST
     Route: 048
  488. OXYCODONE TEREPHTHALATE [Suspect]
     Active Substance: OXYCODONE TEREPHTHALATE
     Indication: Product used for unknown indication
  489. PERIOGARD [Suspect]
     Active Substance: CHLORHEXIDINE GLUCONATE
     Indication: Rheumatoid arthritis
     Route: 002
  490. PERIOGARD [Suspect]
     Active Substance: CHLORHEXIDINE GLUCONATE
     Indication: Product used for unknown indication
  491. PHTHALYLSULFATHIAZOLE [Suspect]
     Active Substance: PHTHALYLSULFATHIAZOLE
     Indication: Rheumatoid arthritis
  492. PHTHALYLSULFATHIAZOLE [Suspect]
     Active Substance: PHTHALYLSULFATHIAZOLE
     Indication: Product used for unknown indication
  493. PHTHALYLSULFATHIAZOLE [Suspect]
     Active Substance: PHTHALYLSULFATHIAZOLE
  494. PHTHALYLSULFATHIAZOLE [Suspect]
     Active Substance: PHTHALYLSULFATHIAZOLE
  495. PHTHALYLSULFATHIAZOLE [Suspect]
     Active Substance: PHTHALYLSULFATHIAZOLE
     Route: 016
  496. PHTHALYLSULFATHIAZOLE [Suspect]
     Active Substance: PHTHALYLSULFATHIAZOLE
     Route: 058
  497. PHTHALYLSULFATHIAZOLE [Suspect]
     Active Substance: PHTHALYLSULFATHIAZOLE
     Route: 042
  498. PHTHALYLSULFATHIAZOLE [Suspect]
     Active Substance: PHTHALYLSULFATHIAZOLE
  499. PHTHALYLSULFATHIAZOLE [Suspect]
     Active Substance: PHTHALYLSULFATHIAZOLE
     Route: 048
  500. PHTHALYLSULFATHIAZOLE [Suspect]
     Active Substance: PHTHALYLSULFATHIAZOLE
     Route: 042
  501. PHTHALYLSULFATHIAZOLE [Suspect]
     Active Substance: PHTHALYLSULFATHIAZOLE
     Dosage: 2 EVERY 1 DAYS
     Route: 048
  502. PHTHALYLSULFATHIAZOLE [Suspect]
     Active Substance: PHTHALYLSULFATHIAZOLE
     Route: 048
  503. PHTHALYLSULFATHIAZOLE [Suspect]
     Active Substance: PHTHALYLSULFATHIAZOLE
  504. PHTHALYLSULFATHIAZOLE [Suspect]
     Active Substance: PHTHALYLSULFATHIAZOLE
     Dosage: 2 EVERY 1 DAYS
  505. PHTHALYLSULFATHIAZOLE [Suspect]
     Active Substance: PHTHALYLSULFATHIAZOLE
     Route: 048
  506. PHTHALYLSULFATHIAZOLE [Suspect]
     Active Substance: PHTHALYLSULFATHIAZOLE
     Route: 016
  507. PHTHALYLSULFATHIAZOLE [Suspect]
     Active Substance: PHTHALYLSULFATHIAZOLE
     Route: 058
  508. PHTHALYLSULFATHIAZOLE [Suspect]
     Active Substance: PHTHALYLSULFATHIAZOLE
     Route: 048
  509. PHTHALYLSULFATHIAZOLE [Suspect]
     Active Substance: PHTHALYLSULFATHIAZOLE
     Route: 048
  510. PHTHALYLSULFATHIAZOLE [Suspect]
     Active Substance: PHTHALYLSULFATHIAZOLE
     Dosage: 2 EVERY 1 DAYS
     Route: 048
  511. PLAQUENIL [Suspect]
     Active Substance: HYDROXYCHLOROQUINE SULFATE
     Indication: Rheumatoid arthritis
  512. PLAQUENIL [Suspect]
     Active Substance: HYDROXYCHLOROQUINE SULFATE
  513. PLAQUENIL [Suspect]
     Active Substance: HYDROXYCHLOROQUINE SULFATE
  514. PLAQUENIL [Suspect]
     Active Substance: HYDROXYCHLOROQUINE SULFATE
  515. PLAQUENIL [Suspect]
     Active Substance: HYDROXYCHLOROQUINE SULFATE
     Route: 048
  516. PLAQUENIL [Suspect]
     Active Substance: HYDROXYCHLOROQUINE SULFATE
     Route: 048
  517. PLAQUENIL [Suspect]
     Active Substance: HYDROXYCHLOROQUINE SULFATE
     Route: 048
  518. PREDNISONE [Suspect]
     Active Substance: PREDNISONE
     Indication: Rheumatoid arthritis
     Route: 048
  519. PREDNISONE [Suspect]
     Active Substance: PREDNISONE
     Indication: Psoriatic arthropathy
     Route: 048
  520. PREDNISONE [Suspect]
     Active Substance: PREDNISONE
     Indication: Condition aggravated
  521. PREDNISONE [Suspect]
     Active Substance: PREDNISONE
  522. PREDNISONE [Suspect]
     Active Substance: PREDNISONE
     Route: 048
  523. PREDNISONE [Suspect]
     Active Substance: PREDNISONE
     Route: 042
  524. PSEUDOEPHEDRINE [Suspect]
     Active Substance: PSEUDOEPHEDRINE
     Indication: Rheumatoid arthritis
  525. PSEUDOEPHEDRINE [Suspect]
     Active Substance: PSEUDOEPHEDRINE
  526. RAMIPRIL [Suspect]
     Active Substance: RAMIPRIL
     Indication: Product used for unknown indication
  527. CETIRIZINE HYDROCHLORIDE [Suspect]
     Active Substance: CETIRIZINE HYDROCHLORIDE
     Indication: Rheumatoid arthritis
  528. CETIRIZINE HYDROCHLORIDE [Suspect]
     Active Substance: CETIRIZINE HYDROCHLORIDE
     Route: 016
  529. CETIRIZINE HYDROCHLORIDE [Suspect]
     Active Substance: CETIRIZINE HYDROCHLORIDE
  530. CETIRIZINE HYDROCHLORIDE [Suspect]
     Active Substance: CETIRIZINE HYDROCHLORIDE
  531. CETIRIZINE HYDROCHLORIDE [Suspect]
     Active Substance: CETIRIZINE HYDROCHLORIDE
     Route: 048
  532. CETIRIZINE HYDROCHLORIDE\PSEUDOEPHEDRINE HYDROCHLORIDE [Suspect]
     Active Substance: CETIRIZINE HYDROCHLORIDE\PSEUDOEPHEDRINE HYDROCHLORIDE
     Indication: Rheumatoid arthritis
  533. CETIRIZINE HYDROCHLORIDE\PSEUDOEPHEDRINE HYDROCHLORIDE [Suspect]
     Active Substance: CETIRIZINE HYDROCHLORIDE\PSEUDOEPHEDRINE HYDROCHLORIDE
  534. REMICADE [Suspect]
     Active Substance: INFLIXIMAB
     Indication: Rheumatoid arthritis
     Route: 042
  535. REMICADE [Suspect]
     Active Substance: INFLIXIMAB
     Route: 042
  536. REMICADE [Suspect]
     Active Substance: INFLIXIMAB
     Route: 042
  537. REMICADE [Suspect]
     Active Substance: INFLIXIMAB
     Route: 042
  538. REMICADE [Suspect]
     Active Substance: INFLIXIMAB
  539. REMICADE [Suspect]
     Active Substance: INFLIXIMAB
     Route: 042
  540. REMICADE [Suspect]
     Active Substance: INFLIXIMAB
     Route: 058
  541. REMICADE [Suspect]
     Active Substance: INFLIXIMAB
     Route: 042
  542. REMICADE [Suspect]
     Active Substance: INFLIXIMAB
     Route: 042
  543. REMICADE [Suspect]
     Active Substance: INFLIXIMAB
     Route: 042
  544. REMICADE [Suspect]
     Active Substance: INFLIXIMAB
  545. REMICADE [Suspect]
     Active Substance: INFLIXIMAB
     Route: 042
  546. REMICADE [Suspect]
     Active Substance: INFLIXIMAB
     Route: 042
  547. REMICADE [Suspect]
     Active Substance: INFLIXIMAB
     Route: 042
  548. REMICADE [Suspect]
     Active Substance: INFLIXIMAB
     Route: 042
  549. REMICADE [Suspect]
     Active Substance: INFLIXIMAB
     Route: 042
  550. REMICADE [Suspect]
     Active Substance: INFLIXIMAB
     Route: 042
  551. REMICADE [Suspect]
     Active Substance: INFLIXIMAB
     Route: 042
  552. ALENDRONATE SODIUM [Suspect]
     Active Substance: ALENDRONATE SODIUM
     Indication: Rheumatoid arthritis
  553. ALENDRONATE SODIUM [Suspect]
     Active Substance: ALENDRONATE SODIUM
  554. ALENDRONATE SODIUM [Suspect]
     Active Substance: ALENDRONATE SODIUM
     Route: 048
  555. ALENDRONATE SODIUM [Suspect]
     Active Substance: ALENDRONATE SODIUM
     Route: 048
  556. ALENDRONATE SODIUM [Suspect]
     Active Substance: ALENDRONATE SODIUM
     Route: 048
  557. ALENDRONATE SODIUM [Suspect]
     Active Substance: ALENDRONATE SODIUM
     Route: 048
  558. CELECOXIB [Suspect]
     Active Substance: CELECOXIB
     Indication: Rheumatoid arthritis
     Route: 048
  559. HYDROCORTISONE [Suspect]
     Active Substance: HYDROCORTISONE
     Indication: Rheumatoid arthritis
  560. LEFLUNOMIDE [Suspect]
     Active Substance: LEFLUNOMIDE
     Indication: Rheumatoid arthritis
     Route: 048
  561. LEFLUNOMIDE [Suspect]
     Active Substance: LEFLUNOMIDE
  562. LEFLUNOMIDE [Suspect]
     Active Substance: LEFLUNOMIDE
     Route: 048
  563. MYCOPHENOLATE MOFETIL [Suspect]
     Active Substance: MYCOPHENOLATE MOFETIL
     Indication: Rheumatoid arthritis

REACTIONS (51)
  - Deep vein thrombosis postoperative [Fatal]
  - Irritable bowel syndrome [Fatal]
  - Therapeutic response decreased [Fatal]
  - Product use in unapproved indication [Fatal]
  - Intentional product use issue [Fatal]
  - Rheumatic fever [Fatal]
  - Dry mouth [Fatal]
  - Pericarditis [Fatal]
  - Facet joint syndrome [Fatal]
  - Systemic lupus erythematosus [Fatal]
  - Off label use [Fatal]
  - C-reactive protein increased [Fatal]
  - Autoimmune disorder [Fatal]
  - Wheezing [Fatal]
  - Blepharospasm [Fatal]
  - Type 2 diabetes mellitus [Fatal]
  - Musculoskeletal stiffness [Fatal]
  - Prescribed underdose [Fatal]
  - Peripheral swelling [Fatal]
  - Peripheral venous disease [Fatal]
  - Psoriatic arthropathy [Fatal]
  - Rheumatoid arthritis [Fatal]
  - Stomatitis [Fatal]
  - Urticaria [Fatal]
  - Weight increased [Fatal]
  - Asthenia [Fatal]
  - Asthma [Fatal]
  - Blood cholesterol increased [Fatal]
  - Bursitis [Fatal]
  - Chest pain [Fatal]
  - Confusional state [Fatal]
  - Contusion [Fatal]
  - Dizziness [Fatal]
  - Hypertension [Fatal]
  - Liver injury [Fatal]
  - Nasopharyngitis [Fatal]
  - Night sweats [Fatal]
  - Obesity [Fatal]
  - Osteoarthritis [Fatal]
  - Paraesthesia [Fatal]
  - Dislocation of vertebra [Fatal]
  - Hypercholesterolaemia [Fatal]
  - Wound infection [Fatal]
  - Maternal exposure during pregnancy [Fatal]
  - Therapy non-responder [Fatal]
  - Pregnancy [Fatal]
  - C-reactive protein abnormal [Fatal]
  - Contraindicated product administered [Fatal]
  - Diarrhoea [Fatal]
  - Sinusitis [Fatal]
  - Therapeutic product effect decreased [Fatal]
